FAERS Safety Report 6158571-3 (Version None)
Quarter: 2009Q2

REPORT INFORMATION
  Report Type: 
  Country: None (occurrence: None)
  Receive Date: 20090417
  Receipt Date: 20090407
  Transmission Date: 20091009
  Serious: Yes (Other)
  Sender: FDA-Public Use
  Company Number: US-ELI_LILLY_AND_COMPANY-US200904001522

PATIENT
  Sex: Female

DRUGS (8)
  1. CYMBALTA [Suspect]
     Indication: ANXIETY
     Dosage: 60 MG, UNK
     Route: 048
     Dates: start: 20071001
  2. CYMBALTA [Suspect]
     Dosage: 60 MG, EACH MORNING
     Route: 048
     Dates: start: 20090101
  3. CYMBALTA [Suspect]
     Dosage: 30 MG, EACH EVENING
     Route: 048
     Dates: start: 20090101
  4. XANAX [Concomitant]
     Dosage: 0.25 MG, 3/D
  5. XALATAN [Concomitant]
     Indication: GLAUCOMA
  6. SUPPOSITOIRES A LA GLYCERINE [Concomitant]
  7. DIGESTIVES, INCL ENZYMES [Concomitant]
  8. LEXAPRO [Concomitant]

REACTIONS (3)
  - DRUG INEFFECTIVE [None]
  - RADIATION SKIN INJURY [None]
  - UTERINE CANCER [None]
